FAERS Safety Report 9429218 (Version 2)
Quarter: 2013Q3

REPORT INFORMATION
  Report Type: Report from Study
  Country: IT (occurrence: IT)
  Receive Date: 20130730
  Receipt Date: 20130826
  Transmission Date: 20140515
  Serious: Yes (Hospitalization)
  Sender: FDA-Public Use
  Company Number: IT-PFIZER INC-2013215999

PATIENT
  Age: 68 Year
  Sex: Male
  Weight: 70 kg

DRUGS (6)
  1. FLUOROURACIL [Suspect]
     Indication: HEAD AND NECK CANCER
     Dosage: 3000 MG/M2, FOR 46H, EVERY 21 DAYS
     Route: 042
  2. FLUOROURACIL [Suspect]
     Dosage: 400 MG/M2, CYCLIC, EVERY 21 DAYS
     Route: 040
  3. FLUOROURACIL [Suspect]
     Dosage: 60% REDUCTION (1500 MG/M2, WITHOUT BOLUS), CYCLIC
  4. FLUOROURACIL [Suspect]
     Dosage: 2000 MG/M2, CYCLIC
     Route: 040
  5. CARBOPLATIN [Suspect]
     Indication: HEAD AND NECK CANCER
     Dosage: AUC 4, EVERY 21 DAYS
     Route: 042
  6. LEUCOVORIN [Suspect]
     Indication: HEAD AND NECK CANCER
     Dosage: 200 MG TOTAL, EVERY 21 DAYS
     Route: 042

REACTIONS (7)
  - Febrile neutropenia [Unknown]
  - Thrombocytopenia [Recovered/Resolved]
  - Escherichia sepsis [Recovered/Resolved]
  - Mucosal inflammation [Recovered/Resolved]
  - Anaemia [Unknown]
  - Mouth ulceration [Recovered/Resolved]
  - Candida infection [Recovered/Resolved]
